FAERS Safety Report 5751667-7 (Version None)
Quarter: 2008Q2

REPORT INFORMATION
  Report Type: 
  Country: None (occurrence: None)
  Receive Date: 20080528
  Receipt Date: 20080521
  Transmission Date: 20081010
  Serious: Yes (Life-Threatening, Hospitalization, Other)
  Sender: FDA-Public Use
  Company Number: PHHY2008JP03810

PATIENT
  Sex: Male

DRUGS (5)
  1. DIOVAN [Suspect]
     Indication: HYPERTENSION
     Dosage: 80MG 140 TIMES, 11200 MG
     Route: 048
     Dates: start: 20080324, end: 20080324
  2. HIRNAMIN [Concomitant]
     Indication: DEPRESSION
     Dosage: 5MG 38 TIMES
     Route: 048
     Dates: start: 20080324
  3. AMOBAN [Concomitant]
     Indication: DEPRESSION
     Dosage: 7.5MG 14 TIMES
     Route: 048
     Dates: start: 20080324
  4. NORVASC [Concomitant]
     Indication: HYPERTENSION
     Dosage: 5MG 20 TIMES
     Route: 048
     Dates: start: 20080324
  5. PAXIL [Concomitant]
     Indication: DEPRESSION
     Dosage: 10MG 28 TIMES
     Route: 048
     Dates: start: 20080324

REACTIONS (19)
  - ACUTE PRERENAL FAILURE [None]
  - ALANINE AMINOTRANSFERASE INCREASED [None]
  - ANURIA [None]
  - ASPARTATE AMINOTRANSFERASE INCREASED [None]
  - BLOOD BILIRUBIN INCREASED [None]
  - BLOOD CREATININE INCREASED [None]
  - BLOOD GLUCOSE INCREASED [None]
  - BLOOD PRESSURE ABNORMAL [None]
  - BLOOD UREA INCREASED [None]
  - DEPRESSED LEVEL OF CONSCIOUSNESS [None]
  - FALL [None]
  - FLUID REPLACEMENT [None]
  - GAMMA-GLUTAMYLTRANSFERASE INCREASED [None]
  - INTENTIONAL OVERDOSE [None]
  - RED BLOOD CELL COUNT INCREASED [None]
  - SOMNOLENCE [None]
  - SUICIDE ATTEMPT [None]
  - URINE OUTPUT DECREASED [None]
  - WHITE BLOOD CELL COUNT INCREASED [None]
